FAERS Safety Report 12093955 (Version 1)
Quarter: 2016Q1

REPORT INFORMATION
  Report Type: Spontaneous
  Country: US (occurrence: US)
  Receive Date: 20160219
  Receipt Date: 20160219
  Transmission Date: 20160526
  Serious: Yes (Other)
  Sender: FDA-Public Use
  Company Number: US-ASTRAZENECA-2016SE16342

PATIENT
  Sex: Female
  Weight: 58.1 kg

DRUGS (11)
  1. TOPROL XL [Suspect]
     Active Substance: METOPROLOL SUCCINATE
     Indication: SUPRAVENTRICULAR TACHYCARDIA
     Route: 048
     Dates: start: 201501
  2. TOPROL XL [Suspect]
     Active Substance: METOPROLOL SUCCINATE
     Indication: SUPRAVENTRICULAR TACHYCARDIA
     Route: 048
     Dates: start: 201501
  3. TOPROL XL [Suspect]
     Active Substance: METOPROLOL SUCCINATE
     Indication: ARRHYTHMIA
     Route: 048
     Dates: start: 201501
  4. CORGARD [Concomitant]
     Active Substance: NADOLOL
  5. TOPROL XL [Suspect]
     Active Substance: METOPROLOL SUCCINATE
     Indication: ARRHYTHMIA
     Route: 048
     Dates: start: 201501
  6. TIKOSYN [Concomitant]
     Active Substance: DOFETILIDE
  7. BABY ASPIRIN [Concomitant]
     Active Substance: ASPIRIN
     Indication: VERTIGO
  8. TOPROL XL [Suspect]
     Active Substance: METOPROLOL SUCCINATE
     Indication: VENTRICULAR TACHYCARDIA
     Route: 048
     Dates: start: 201501
  9. TOPROL XL [Suspect]
     Active Substance: METOPROLOL SUCCINATE
     Indication: VENTRICULAR TACHYCARDIA
     Route: 048
     Dates: start: 201501
  10. METOPROLOL. [Suspect]
     Active Substance: METOPROLOL
     Indication: ARRHYTHMIA
     Route: 048
  11. BYSTOLIC [Concomitant]
     Active Substance: NEBIVOLOL HYDROCHLORIDE

REACTIONS (10)
  - Atrial fibrillation [Unknown]
  - Drug hypersensitivity [Unknown]
  - Tachycardia [Unknown]
  - Pruritus [Unknown]
  - Menopausal symptoms [Unknown]
  - Vertigo [Unknown]
  - Supraventricular extrasystoles [Unknown]
  - Erythema [Unknown]
  - Malaise [Unknown]
  - Insomnia [Unknown]
